FAERS Safety Report 13639296 (Version 1)
Quarter: 2017Q2

REPORT INFORMATION
  Report Type: Spontaneous
  Country: US (occurrence: US)
  Receive Date: 20170609
  Receipt Date: 20170609
  Transmission Date: 20170830
  Serious: No
  Sender: FDA-Public Use
  Company Number: US-ROCHE-1001293

PATIENT
  Sex: Male

DRUGS (1)
  1. CLONAZEPAM. [Suspect]
     Active Substance: CLONAZEPAM
     Indication: ANXIETY
     Route: 048
     Dates: start: 20090920, end: 20091202

REACTIONS (3)
  - Affect lability [Unknown]
  - Alcohol use [Unknown]
  - Mental disorder [Unknown]

NARRATIVE: CASE EVENT DATE: 20090929
